FAERS Safety Report 5330308-7 (Version None)
Quarter: 2007Q2

REPORT INFORMATION
  Report Type: 
  Country: None (occurrence: None)
  Receive Date: 20070521
  Receipt Date: 20070521
  Transmission Date: 20071010
  Serious: Yes (Hospitalization)
  Sender: FDA-Public Use
  Company Number: DEWYE394710APR07

PATIENT
  Sex: Male

DRUGS (3)
  1. LORAZEPAM [Suspect]
     Dosage: 100 TABLETS (OVERDOSE AMOUNT UNKNOWN)
     Route: 048
     Dates: start: 20070407, end: 20070407
  2. TAMSULOSIN HCL [Suspect]
     Dosage: 20 TABLETS (OVERDOSE AMOUNT 8MG)
     Route: 048
     Dates: start: 20070407, end: 20070407
  3. VENLAFAXINE HCL [Suspect]
     Dosage: 20 CAPSULES (OVERDOSE AMOUNT 1500 MG)
     Route: 048
     Dates: start: 20070407, end: 20070407

REACTIONS (4)
  - BOWEL SOUNDS ABNORMAL [None]
  - HYPOTENSION [None]
  - INTENTIONAL OVERDOSE [None]
  - SOMNOLENCE [None]
